FAERS Safety Report 25226624 (Version 2)
Quarter: 2025Q3

REPORT INFORMATION
  Report Type: Spontaneous
  Country: CN (occurrence: CN)
  Receive Date: 20250422
  Receipt Date: 20250803
  Transmission Date: 20251020
  Serious: Yes (Hospitalization, Other)
  Sender: ALEXION PHARMACEUTICALS
  Company Number: CN-ASTRAZENECA-202504CHN013438CN

PATIENT
  Age: 54 Year
  Sex: Female
  Weight: 72 kg

DRUGS (2)
  1. DAPAGLIFLOZIN [Suspect]
     Active Substance: DAPAGLIFLOZIN
     Indication: Type 2 diabetes mellitus
     Dosage: 10 MILLIGRAM, QD
     Dates: start: 20250329, end: 20250408
  2. Mulberry twig alkaloids [Concomitant]
     Indication: Type 2 diabetes mellitus
     Dosage: 50 MILLIGRAM, TID
     Dates: start: 20250408, end: 20250408

REACTIONS (2)
  - Diabetic ketoacidosis [Recovering/Resolving]
  - Endometrial cancer [Unknown]

NARRATIVE: CASE EVENT DATE: 20250408
